FAERS Safety Report 15417685 (Version 2)
Quarter: 2018Q4

REPORT INFORMATION
  Report Type: Spontaneous
  Country: US (occurrence: US)
  Receive Date: 20180924
  Receipt Date: 20181004
  Transmission Date: 20190204
  Serious: No
  Sender: FDA-Public Use
  Company Number: US-CELGENEUS-USA-20180907605

PATIENT
  Sex: Female

DRUGS (1)
  1. OTEZLA [Suspect]
     Active Substance: APREMILAST
     Indication: PSORIASIS
     Dosage: 10 20, 30 MG, TITRATION PACK.
     Route: 048
     Dates: start: 201511

REACTIONS (3)
  - Diarrhoea [Recovered/Resolved]
  - Headache [Recovering/Resolving]
  - Gastric disorder [Recovered/Resolved]

NARRATIVE: CASE EVENT DATE: 2015
